FAERS Safety Report 9637993 (Version 2)
Quarter: 2013Q4

REPORT INFORMATION
  Report Type: Spontaneous
  Country: US (occurrence: US)
  Receive Date: 20131022
  Receipt Date: 20131028
  Transmission Date: 20140711
  Serious: No
  Sender: FDA-Public Use
  Company Number: US-BAYER-2013-127536

PATIENT
  Age: 56 Year
  Sex: Male
  Weight: 112.2 kg

DRUGS (5)
  1. ALEVE GELCAPS [Suspect]
     Indication: MUSCULOSKELETAL PAIN
     Dosage: UNK
     Route: 048
     Dates: start: 2010
  2. LANTUS [Concomitant]
     Dosage: UNK
  3. NOVOLOG [Concomitant]
     Dosage: UNK
  4. METOPROLOL [Concomitant]
     Dosage: UNK
  5. ONE A DAY [Concomitant]
     Dosage: UNK

REACTIONS (3)
  - Therapeutic response unexpected [None]
  - Drug prescribing error [None]
  - Drug ineffective [None]
